FAERS Safety Report 22088124 (Version 1)
Quarter: 2023Q1

REPORT INFORMATION
  Report Type: Report from Study
  Country: MX (occurrence: MX)
  Receive Date: 20230313
  Receipt Date: 20230313
  Transmission Date: 20230418
  Serious: Yes (Life-Threatening, Hospitalization)
  Sender: FDA-Public Use
  Company Number: MX-002147023-NVSC2022MX300985

PATIENT
  Age: 47 Year
  Sex: Female
  Weight: 68 kg

DRUGS (7)
  1. GILENYA [Suspect]
     Active Substance: FINGOLIMOD HYDROCHLORIDE
     Indication: Multiple sclerosis
     Dosage: 0.5 MG, QD,
     Route: 048
     Dates: start: 20201202, end: 20221201
  2. GILENYA [Suspect]
     Active Substance: FINGOLIMOD HYDROCHLORIDE
     Dosage: 2 DOSAGE FORM, QD, 2 (0.5MG)
     Route: 048
     Dates: start: 20221202, end: 20221208
  3. GILENYA [Suspect]
     Active Substance: FINGOLIMOD HYDROCHLORIDE
     Dosage: 0.5 MG, QD
     Route: 048
     Dates: start: 20221209
  4. OLANZAPINE [Concomitant]
     Active Substance: OLANZAPINE
     Indication: Anxiety
     Dosage: 1 DOSAGE FORM, Q24H, (STARTED 4 YEARS AGO, UNKNOWN EXACT DATE)
     Route: 048
  5. CARBAMAZEPINE [Concomitant]
     Active Substance: CARBAMAZEPINE
     Indication: Anxiety
     Dosage: 1 DOSAGE FORM, Q24H, (STARTED 4 YEARS AGO, UNKNOWN EXACT DATE)
     Route: 048
  6. CLONAZEPAM [Concomitant]
     Active Substance: CLONAZEPAM
     Indication: Anxiety
     Dosage: 1 DOSAGE FORM, Q24H, (STARTED 4 YEARS AGO, UNKNOWN EXACT DATE)
     Route: 048
  7. LOSARTAN [Concomitant]
     Active Substance: LOSARTAN
     Indication: Hypertension
     Dosage: UNK, (STARTED 6 YEARS AGO, UNKNOWN EXACT DATE)
     Route: 048

REACTIONS (3)
  - Coma [Unknown]
  - Seizure [Not Recovered/Not Resolved]
  - Intentional overdose [Recovered/Resolved]

NARRATIVE: CASE EVENT DATE: 20221202
